FAERS Safety Report 6010709-4 (Version None)
Quarter: 2008Q4

REPORT INFORMATION
  Report Type: 
  Country: None (occurrence: None)
  Receive Date: 20081218
  Receipt Date: 20081201
  Transmission Date: 20090506
  Serious: Yes (Hospitalization, Disabling)
  Sender: FDA-Public Use
  Company Number: US-EISAI MEDICAL RESEARCH-E2080-00086-CLI-US

PATIENT
  Sex: Male
  Weight: 77.6 kg

DRUGS (8)
  1. E2080 [Suspect]
     Indication: PARTIAL SEIZURES
     Route: 048
     Dates: start: 20080116, end: 20081002
  2. E2080 [Suspect]
     Route: 048
     Dates: start: 20081003, end: 20081109
  3. ENALAPRIL MALEATE [Concomitant]
     Indication: HYPERTENSION
     Route: 048
     Dates: start: 20040614
  4. TIAGABINE HCL [Concomitant]
     Indication: CONVULSION
     Route: 048
     Dates: start: 20070628
  5. HYDROCHLOROTHIAZIDE [Concomitant]
     Indication: HYPERTENSION
     Route: 048
     Dates: start: 20070404
  6. PREGABALIN [Concomitant]
     Indication: CONVULSION
     Dosage: AND 75 MG IN EVENING AND BEDTIME
     Route: 048
     Dates: start: 20070829
  7. CARBAMAZEPINE [Concomitant]
     Indication: CONVULSION
     Route: 048
     Dates: start: 20060829
  8. FLUOCINONIDE [Concomitant]
     Indication: EXCORIATION
     Route: 061
     Dates: start: 20081120

REACTIONS (2)
  - AGGRESSION [None]
  - AGITATION [None]
